FAERS Safety Report 13720133 (Version 1)
Quarter: 2017Q3

REPORT INFORMATION
  Report Type: Spontaneous
  Country: FR (occurrence: FR)
  Receive Date: 20170706
  Receipt Date: 20170706
  Transmission Date: 20171127
  Serious: Yes (Hospitalization, Other)
  Sender: FDA-Public Use
  Company Number: FR-UCBSA-2017026148

PATIENT
  Age: 30 Year
  Sex: Female

DRUGS (3)
  1. KEPPRA [Suspect]
     Active Substance: LEVETIRACETAM
     Indication: JUVENILE MYOCLONIC EPILEPSY
     Dosage: 500 MG, UNK
     Dates: start: 2008
  2. KEPPRA [Suspect]
     Active Substance: LEVETIRACETAM
     Indication: STATUS EPILEPTICUS
     Dosage: 1000 MG, UNK
  3. KEPPRA [Suspect]
     Active Substance: LEVETIRACETAM
     Indication: OFF LABEL USE

REACTIONS (11)
  - Alopecia [Unknown]
  - Acne cystic [Unknown]
  - Off label use [Unknown]
  - Aggression [Unknown]
  - Anxiety [Unknown]
  - Fatigue [Unknown]
  - Depression [Unknown]
  - Suicidal ideation [Unknown]
  - Panic attack [Recovered/Resolved]
  - Insomnia [Unknown]
  - Disturbance in attention [Unknown]
